FAERS Safety Report 23667483 (Version 2)
Quarter: 2024Q2

REPORT INFORMATION
  Report Type: Spontaneous
  Country: JP (occurrence: JP)
  Receive Date: 20240325
  Receipt Date: 20240429
  Transmission Date: 20240716
  Serious: Yes (Hospitalization, Other)
  Sender: FDA-Public Use
  Company Number: JP-ASTELLAS-2024JP000544

PATIENT
  Age: 7 Decade
  Sex: Male

DRUGS (1)
  1. PADCEV [Suspect]
     Active Substance: ENFORTUMAB VEDOTIN-EJFV
     Indication: Bladder cancer
     Dosage: UNK UNK, UNKNOWN FREQ.
     Route: 065
     Dates: start: 20231212

REACTIONS (5)
  - Rash [Recovering/Resolving]
  - Hyperglycaemia [Recovering/Resolving]
  - Renal impairment [Recovering/Resolving]
  - Ketoacidosis [Recovering/Resolving]
  - Cardiac failure [Recovering/Resolving]
